FAERS Safety Report 7562978-7 (Version None)
Quarter: 2011Q2

REPORT INFORMATION
  Report Type: 
  Country: None (occurrence: None)
  Receive Date: 20110622
  Receipt Date: 20110612
  Transmission Date: 20111010
  Serious: Yes (Life-Threatening, Hospitalization)
  Sender: FDA-Public Use
  Company Number: EG-SANOFI-AVENTIS-2011SA037108

PATIENT
  Age: 13 Year
  Sex: Female

DRUGS (2)
  1. INSULIN GLARGINE [Suspect]
     Indication: DIABETES MELLITUS
     Route: 058
     Dates: start: 20100901
  2. ACTRAPID HUMAN [Suspect]
     Indication: DIABETES MELLITUS
     Dosage: 20 U (BREAKFAST ) + 25 U ( LUNCH) + 20 U (DINNER )
     Dates: start: 20101101

REACTIONS (5)
  - DIABETIC KETOACIDOSIS [None]
  - DEHYDRATION [None]
  - HYPERGLYCAEMIA [None]
  - COMA [None]
  - DRUG INEFFECTIVE [None]
